FAERS Safety Report 8391481-X (Version None)
Quarter: 2012Q2

REPORT INFORMATION
  Report Type: 
  Country: None (occurrence: None)
  Receive Date: 20120529
  Receipt Date: 20120522
  Transmission Date: 20120825
  Serious: Yes (Hospitalization)
  Sender: FDA-Public Use
  Company Number: US-BAYER-2012-051995

PATIENT
  Age: 29 Year
  Sex: Female
  Weight: 57.143 kg

DRUGS (6)
  1. AMBIEN [Concomitant]
     Dosage: 12.5 MG, UNK
     Route: 048
     Dates: start: 20070321
  2. VALIUM [Concomitant]
     Dosage: UNK UNK, PRN
     Route: 048
     Dates: start: 20070508
  3. SKELAXIN [Concomitant]
     Dosage: 800 MG, UNK
     Route: 048
     Dates: start: 20070203
  4. YAZ [Suspect]
  5. PAXIL [Concomitant]
     Dosage: 12.5 MG, UNK
     Route: 048
     Dates: start: 20070309
  6. LIDODERM [Concomitant]
     Dosage: 5 %, UNK
     Route: 061
     Dates: start: 20070222

REACTIONS (1)
  - PULMONARY EMBOLISM [None]
